FAERS Safety Report 26217920 (Version 1)
Quarter: 2025Q4

REPORT INFORMATION
  Report Type: Spontaneous
  Country: EU (occurrence: EU)
  Receive Date: 20251231
  Receipt Date: 20251231
  Transmission Date: 20260118
  Serious: Yes (Other)
  Sender: SANOFI AVENTIS
  Company Number: EU-DialogSolutions-SAAVPROD-PI859736-C1

PATIENT
  Age: 64 Year
  Sex: Female

DRUGS (22)
  1. RIFAMPIN [Suspect]
     Active Substance: RIFAMPIN
     Indication: Intervertebral discitis
     Dosage: UNK
  2. BISOPROLOL [Concomitant]
     Active Substance: BISOPROLOL
     Indication: Hypertension
     Dosage: 5 MG, QD
  3. BISOPROLOL [Concomitant]
     Active Substance: BISOPROLOL
     Indication: Malignant hypertension
     Dosage: 5 MG, BID
  4. BISOPROLOL [Concomitant]
     Active Substance: BISOPROLOL
     Dosage: 5 MG, QD, AFTER THE DISCONTINUATION OF RIFAMPICIN THERAPY
  5. HYDROCHLOROTHIAZIDE [Concomitant]
     Active Substance: HYDROCHLOROTHIAZIDE
     Indication: Hypertension
     Dosage: 12.5 MG, QD
  6. HYDROCHLOROTHIAZIDE [Concomitant]
     Active Substance: HYDROCHLOROTHIAZIDE
     Indication: Malignant hypertension
     Dosage: 12.5 MG, QD, AFTER THE DISCONTINUATION OF RIFAMPICIN THERAPY
  7. CEFAZOLIN [Concomitant]
     Active Substance: CEFAZOLIN
     Indication: Intervertebral discitis
  8. NEBIVOLOL [Concomitant]
     Active Substance: NEBIVOLOL
     Indication: Hypertension
     Dosage: 5 MG, QD, IN THE BEGINNING OF RIFAMPICIN THERAPY
  9. NEBIVOLOL [Concomitant]
     Active Substance: NEBIVOLOL
     Indication: Malignant hypertension
  10. LOSARTAN [Concomitant]
     Active Substance: LOSARTAN
     Indication: Hypertension
     Dosage: 50 MG, QD
  11. LOSARTAN [Concomitant]
     Active Substance: LOSARTAN
     Indication: Malignant hypertension
     Dosage: 100 MG, QD, IN THE BEGINNING OF RIFAMPICIN THERAPY
  12. SPIRONOLACTONE [Concomitant]
     Active Substance: SPIRONOLACTONE
     Indication: Hypertension
     Dosage: 100 MG, QD, IN THE BEGINNING OF RIFAMPICIN THERAPY
  13. SPIRONOLACTONE [Concomitant]
     Active Substance: SPIRONOLACTONE
     Indication: Pseudoaldosteronism
     Dosage: 100 MG, QD, TREATMENT ADAPTATIONS PERFORMED DURING RIFAMPICIN THERAPY
  14. SPIRONOLACTONE [Concomitant]
     Active Substance: SPIRONOLACTONE
     Indication: Malignant hypertension
  15. AMLODIPINE [Concomitant]
     Active Substance: AMLODIPINE BESYLATE
     Indication: Hypertension
     Dosage: 10 MG, QD, IN THE BEGINNING OF RIFAMPICIN THERAPY
  16. AMLODIPINE [Concomitant]
     Active Substance: AMLODIPINE BESYLATE
     Indication: Malignant hypertension
     Dosage: 5 MG, QD, AFTER THE DISCONTINUATION OF RIFAMPICIN THERAPY
  17. MOXONIDINE [Concomitant]
     Active Substance: MOXONIDINE
     Indication: Hypertension
     Dosage: 0.4 MG, BID, IN THE BEGINNING OF RIFAMPICIN TERAPY
  18. MOXONIDINE [Concomitant]
     Active Substance: MOXONIDINE
     Indication: Malignant hypertension
     Dosage: 0.4 MG, BID,TREATMENT ADAPTATIONS PERFORMED DURING RIFAMPICIN THERAPY
  19. PERINDOPRIL [Concomitant]
     Active Substance: PERINDOPRIL
     Indication: Hypertension
     Dosage: 8 MG, QD
  20. PERINDOPRIL [Concomitant]
     Active Substance: PERINDOPRIL
     Indication: Malignant hypertension
  21. TERAZOSIN [Concomitant]
     Active Substance: TERAZOSIN HYDROCHLORIDE
     Indication: Hypertension
     Dosage: 5 MG, BID
  22. TERAZOSIN [Concomitant]
     Active Substance: TERAZOSIN HYDROCHLORIDE
     Indication: Malignant hypertension

REACTIONS (6)
  - Malignant hypertension [Recovering/Resolving]
  - Pseudoaldosteronism [Recovering/Resolving]
  - Hypokalaemia [Recovering/Resolving]
  - Hyperkaliuria [Recovering/Resolving]
  - Condition aggravated [Recovering/Resolving]
  - Off label use [Recovering/Resolving]
